FAERS Safety Report 5902575-X (Version None)
Quarter: 2008Q3

REPORT INFORMATION
  Report Type: 
  Country: None (occurrence: None)
  Receive Date: 20080924
  Receipt Date: 20080916
  Transmission Date: 20090109
  Serious: Yes (Other)
  Sender: FDA-Public Use
  Company Number: 2008-03342

PATIENT
  Age: 75 Year
  Sex: Male

DRUGS (2)
  1. VELCADE [Suspect]
     Indication: MULTIPLE MYELOMA
     Dosage: 1.3 MG, INTRAVENOUS
     Route: 042
     Dates: start: 20080101
  2. DEXAMETHASONE TAB [Suspect]
     Indication: MULTIPLE MYELOMA
     Dates: start: 20080101

REACTIONS (2)
  - LUNG DISORDER [None]
  - PLASMACYTOMA [None]
